FAERS Safety Report 8024728-X (Version None)
Quarter: 2012Q1

REPORT INFORMATION
  Report Type: 
  Country: None (occurrence: None)
  Receive Date: 20120105
  Receipt Date: 20111230
  Transmission Date: 20120608
  Serious: Yes (Death, Hospitalization)
  Sender: FDA-Public Use
  Company Number: US-ACTELION-A-US2011-57626

PATIENT

DRUGS (3)
  1. CORTICOSTEROID NOS [Suspect]
  2. ASPIRIN [Concomitant]
  3. TRACLEER [Suspect]
     Indication: PULMONARY ARTERIAL HYPERTENSION
     Dosage: UNK
     Route: 048
     Dates: start: 20111006

REACTIONS (3)
  - BLOOD GLUCOSE ABNORMAL [None]
  - PULMONARY OEDEMA [None]
  - DEATH [None]
